FAERS Safety Report 9854073 (Version 1)
Quarter: 2014Q1

REPORT INFORMATION
  Report Type: Spontaneous
  Country: ES (occurrence: ES)
  Receive Date: 20140129
  Receipt Date: 20140129
  Transmission Date: 20141002
  Serious: Yes (Other)
  Sender: FDA-Public Use
  Company Number: ES-UCBSA-110240

PATIENT
  Age: 39 Year
  Sex: Female

DRUGS (1)
  1. KEPPRA [Suspect]
     Dosage: 100 MG/ML
     Route: 048
     Dates: start: 20131210

REACTIONS (1)
  - Leukopenia [Not Recovered/Not Resolved]
